FAERS Safety Report 22221178 (Version 1)
Quarter: 2023Q2

REPORT INFORMATION
  Report Type: Spontaneous
  Country: US (occurrence: US)
  Receive Date: 20230418
  Receipt Date: 20230418
  Transmission Date: 20230721
  Serious: Yes (Other)
  Sender: FDA-Public Use
  Company Number: US-AMGEN-USASP2023063527

PATIENT
  Age: 63 Year
  Sex: Female

DRUGS (7)
  1. FILGRASTIM [Suspect]
     Active Substance: FILGRASTIM
     Indication: Prophylaxis
     Route: 065
  2. CLADRIBINE [Concomitant]
     Active Substance: CLADRIBINE
     Dosage: UNK
  3. CYTARABINE [Concomitant]
     Active Substance: CYTARABINE
  4. IMATINIB [Concomitant]
     Active Substance: IMATINIB
     Dosage: UNK
  5. LENALIDOMIDE [Concomitant]
     Active Substance: LENALIDOMIDE
     Dosage: UNK
  6. DASATINIB [Concomitant]
     Active Substance: DASATINIB
     Dosage: UNK
  7. AZACITIDINE [Concomitant]
     Active Substance: AZACITIDINE
     Dosage: UNK

REACTIONS (3)
  - Cytogenetic abnormality [Unknown]
  - Acute myeloid leukaemia [Unknown]
  - Gene mutation [Unknown]
